FAERS Safety Report 4609874-2 (Version None)
Quarter: 2005Q1

REPORT INFORMATION
  Report Type: 
  Country: None (occurrence: None)
  Receive Date: 20050314
  Receipt Date: 20050302
  Transmission Date: 20050727
  Serious: Yes (Hospitalization)
  Sender: FDA-Public Use
  Company Number: 2005-126125-NL

PATIENT
  Age: 38 Year
  Sex: Male

DRUGS (6)
  1. MIRTAZAPINE [Suspect]
     Indication: DEPRESSION
     Dosage: 30 MG/45 MG
     Dates: start: 20020115, end: 20020302
  2. MIRTAZAPINE [Suspect]
     Indication: DEPRESSION
     Dosage: 30 MG/45 MG
     Dates: start: 20020303, end: 20020311
  3. LORAZEPAM [Suspect]
     Indication: DEPRESSION
     Dosage: 3 MG;
     Dates: start: 20020301, end: 20020305
  4. DIAZEPAM [Concomitant]
  5. CITALOPRAM HYDROBROMIDE [Concomitant]
  6. OLANZAPINE [Concomitant]

REACTIONS (1)
  - DERMATITIS ALLERGIC [None]
